FAERS Safety Report 5147723-7 (Version None)
Quarter: 2006Q4

REPORT INFORMATION
  Report Type: 
  Country: None (occurrence: None)
  Receive Date: 20061110
  Receipt Date: 20061027
  Transmission Date: 20070319
  Serious: Yes (Hospitalization)
  Sender: FDA-Public Use
  Company Number: SEWYE360730OCT06

PATIENT
  Sex: Female

DRUGS (13)
  1. ENBREL [Suspect]
     Indication: ARTHRITIS
     Dosage: UNKNOWN
     Route: 058
     Dates: end: 20060506
  2. PREDNISOLON [Suspect]
     Route: 048
  3. METOPROLOL SUCCINATE [Concomitant]
  4. DETRUSITOL [Concomitant]
  5. KALCIPOS-D [Concomitant]
  6. OMEPRAZOLE [Concomitant]
  7. LINATIL [Concomitant]
  8. ACETAMINOPHEN [Concomitant]
  9. IBUMETIN [Concomitant]
  10. EMGESAN [Concomitant]
  11. TROMBYL [Concomitant]
  12. NOVONORM [Concomitant]
  13. SIMVASTATIN [Concomitant]

REACTIONS (1)
  - STAPHYLOCOCCAL SEPSIS [None]
